FAERS Safety Report 8398708-9 (Version None)
Quarter: 2012Q2

REPORT INFORMATION
  Report Type: 
  Country: None (occurrence: None)
  Receive Date: 20120531
  Receipt Date: 20120521
  Transmission Date: 20120825
  Serious: Yes (Other)
  Sender: FDA-Public Use
  Company Number: GB-ASTRAZENECA-2012SE05616

PATIENT
  Sex: Female

DRUGS (1)
  1. XYLOCAINE [Suspect]
     Indication: CAESAREAN SECTION
     Route: 008

REACTIONS (1)
  - INCORRECT ROUTE OF DRUG ADMINISTRATION [None]
